FAERS Safety Report 12379784 (Version 1)
Quarter: 2016Q2

REPORT INFORMATION
  Report Type: Spontaneous
  Country: US (occurrence: US)
  Receive Date: 20160518
  Receipt Date: 20160518
  Transmission Date: 20160815
  Serious: Yes (Other)
  Sender: FDA-Public Use
  Company Number: US-ROCHE-1688104

PATIENT
  Age: 72 Year
  Sex: Male

DRUGS (3)
  1. TEMOZOLOMIDE. [Suspect]
     Active Substance: TEMOZOLOMIDE
     Route: 065
     Dates: start: 20120807
  2. TEMOZOLOMIDE. [Suspect]
     Active Substance: TEMOZOLOMIDE
     Indication: ANAPLASTIC ASTROCYTOMA
     Route: 065
     Dates: start: 201204
  3. BEVACIZUMAB [Suspect]
     Active Substance: BEVACIZUMAB
     Indication: ANAPLASTIC ASTROCYTOMA
     Route: 065
     Dates: start: 20120807

REACTIONS (3)
  - Nephrotic syndrome [Recovered/Resolved]
  - Glomerulonephritis minimal lesion [Recovered/Resolved]
  - Renal failure [Recovering/Resolving]
